FAERS Safety Report 10178025 (Version 1)
Quarter: 2014Q2

REPORT INFORMATION
  Report Type: Spontaneous
  Country: BR (occurrence: BR)
  Receive Date: 20140517
  Receipt Date: 20140517
  Transmission Date: 20141212
  Serious: Yes (Life-Threatening)
  Sender: FDA-Public Use
  Company Number: BR-ACCORD-023607

PATIENT
  Sex: Male
  Weight: 51 kg

DRUGS (5)
  1. NAUSEDRON [Concomitant]
     Indication: PROPHYLAXIS
     Dosage: 1 AMP
     Route: 042
     Dates: start: 20140415, end: 20140415
  2. DEXAMETHASONE [Concomitant]
     Indication: PROPHYLAXIS
     Dosage: SF 100 ML + DEXAMETHASONE
     Route: 042
     Dates: start: 20140415, end: 20140415
  3. RANITIDINE [Concomitant]
     Indication: PROPHYLAXIS
     Dosage: 50 MG/2 ML
     Route: 042
     Dates: start: 20140415, end: 20140415
  4. PACLITAXEL/PACLITAXEL LIPOSOME [Suspect]
     Indication: OESOPHAGEAL CARCINOMA
     Dosage: 2ND CYCLE
     Route: 042
     Dates: start: 20140415, end: 20140415
  5. DIFENIDRIN [Concomitant]
     Indication: PROPHYLAXIS
     Dosage: SF + 100 ML DIFENIDRIN, 1 AMP
     Route: 042
     Dates: start: 20140415, end: 20140415

REACTIONS (4)
  - Depressed level of consciousness [Recovered/Resolved]
  - Blood pressure immeasurable [Recovered/Resolved]
  - Off label use [Unknown]
  - Respiratory arrest [Recovered/Resolved]
